FAERS Safety Report 6025566-X (Version None)
Quarter: 2008Q4

REPORT INFORMATION
  Report Type: 
  Country: None (occurrence: None)
  Receive Date: 20081231
  Receipt Date: 20081223
  Transmission Date: 20090506
  Serious: Yes (Hospitalization)
  Sender: FDA-Public Use
  Company Number: TW-ABBOTT-08P-153-0492281-00

PATIENT
  Sex: Female

DRUGS (5)
  1. HUMIRA [Suspect]
     Indication: RHEUMATOID ARTHRITIS
     Route: 050
  2. METHOTREXATE [Suspect]
     Indication: DRUG USE FOR UNKNOWN INDICATION
  3. UNSPECIFIED MEDICATION FOR COMMON COLD [Concomitant]
     Indication: NASOPHARYNGITIS
  4. UNKNOWN PRESCRIBED DRUGS [Concomitant]
     Indication: DRUG USE FOR UNKNOWN INDICATION
  5. UNSPECIFIED DMARDS [Concomitant]
     Indication: RHEUMATOID ARTHRITIS

REACTIONS (5)
  - MELAENA [None]
  - MOUTH ULCERATION [None]
  - NASOPHARYNGITIS [None]
  - OVERDOSE [None]
  - SKIN ULCER [None]
